FAERS Safety Report 12729964 (Version 2)
Quarter: 2016Q4

REPORT INFORMATION
  Report Type: Spontaneous
  Country: RU (occurrence: RU)
  Receive Date: 20160909
  Receipt Date: 20161003
  Transmission Date: 20170207
  Serious: Yes (Death, Other)
  Sender: FDA-Public Use
  Company Number: RU-BAYER-2016-168667

PATIENT
  Age: 39 Year
  Sex: Female

DRUGS (2)
  1. HYDROXYUREA. [Concomitant]
     Active Substance: HYDROXYUREA
  2. SORAFENIB (RAF KINASE INHIBITOR) [Suspect]
     Active Substance: SORAFENIB
     Indication: MYELOPROLIFERATIVE NEOPLASM

REACTIONS (5)
  - Off label use [None]
  - Therapeutic response decreased [None]
  - Acute lymphocytic leukaemia [None]
  - Death [Fatal]
  - Acute lymphocytic leukaemia recurrent [None]
